FAERS Safety Report 6805599-3 (Version None)
Quarter: 2010Q2

REPORT INFORMATION
  Report Type: 
  Country: None (occurrence: None)
  Receive Date: 20100628
  Receipt Date: 20080118
  Transmission Date: 20101027
  Serious: No
  Sender: FDA-Public Use
  Company Number: US-PFIZER INC-2008007052

PATIENT
  Sex: Male

DRUGS (3)
  1. GEODON [Suspect]
     Indication: AGITATION
     Dates: start: 20080114
  2. GEODON [Suspect]
     Indication: IRRITABILITY
  3. LITHIUM [Suspect]

REACTIONS (3)
  - ANAL FISSURE [None]
  - DRUG INTOLERANCE [None]
  - FEELING ABNORMAL [None]
